FAERS Safety Report 11635202 (Version 2)
Quarter: 2017Q3

REPORT INFORMATION
  Report Type: Spontaneous
  Country: US (occurrence: US)
  Receive Date: 20151015
  Receipt Date: 20170927
  Transmission Date: 20171127
  Serious: No
  Sender: FDA-Public Use
  Company Number: US-SA-2015SA083936

PATIENT
  Age: 54 Year
  Sex: Female
  Weight: 58.51 kg

DRUGS (11)
  1. LEMTRADA [Suspect]
     Active Substance: ALEMTUZUMAB
     Indication: MULTIPLE SCLEROSIS
     Route: 041
     Dates: start: 20150608, end: 20150612
  2. GABAPENTIN. [Concomitant]
     Active Substance: GABAPENTIN
     Dosage: EVERY 4TH DAY ADDITIONAL TABLET
  3. ZANTAC [Concomitant]
     Active Substance: RANITIDINE HYDROCHLORIDE
     Dosage: 2 TABLETS
  4. MAGNESIUM [Concomitant]
     Active Substance: MAGNESIUM
  5. BACLOFEN. [Concomitant]
     Active Substance: BACLOFEN
  6. ACYCLOVIR. [Concomitant]
     Active Substance: ACYCLOVIR
  7. BIOTIN [Concomitant]
     Active Substance: BIOTIN
  8. SOLU-MEDROL [Concomitant]
     Active Substance: METHYLPREDNISOLONE SODIUM SUCCINATE
  9. ZYRTEC [Concomitant]
     Active Substance: CETIRIZINE HYDROCHLORIDE
  10. AMPYRA [Concomitant]
     Active Substance: DALFAMPRIDINE
  11. VITAMIN D [Concomitant]
     Active Substance: CHOLECALCIFEROL
     Dosage: DOSE:1000 UNIT(S)

REACTIONS (7)
  - Weight increased [Recovered/Resolved]
  - Oedema [Unknown]
  - Blood pressure diastolic increased [Recovered/Resolved]
  - Heart rate decreased [Recovered/Resolved]
  - Headache [Unknown]
  - Chest discomfort [Recovered/Resolved]
  - Sinus bradycardia [Unknown]

NARRATIVE: CASE EVENT DATE: 201506
